FAERS Safety Report 5537948-0 (Version None)
Quarter: 2007Q4

REPORT INFORMATION
  Report Type: 
  Country: None (occurrence: None)
  Receive Date: 20071207
  Receipt Date: 20071127
  Transmission Date: 20080405
  Serious: Yes (Other)
  Sender: FDA-Public Use
  Company Number: US-PFIZER INC-2007100263

PATIENT
  Sex: Female
  Weight: 61.363 kg

DRUGS (1)
  1. DILANTIN [Suspect]
     Indication: CONVULSION
     Route: 048

REACTIONS (5)
  - ANEURYSM [None]
  - BLOOD CHOLESTEROL ABNORMAL [None]
  - EXPIRED DRUG ADMINISTERED [None]
  - HEADACHE [None]
  - OSTEOPOROSIS [None]
